FAERS Safety Report 14096154 (Version 3)
Quarter: 2017Q4

REPORT INFORMATION
  Report Type: Report from Study
  Country: FR (occurrence: FR)
  Receive Date: 20171017
  Receipt Date: 20171030
  Transmission Date: 20180321
  Serious: Yes (Hospitalization)
  Sender: FDA-Public Use
  Company Number: FR-ROCHE-1998594

PATIENT
  Age: 65 Year
  Sex: Female
  Weight: 46 kg

DRUGS (8)
  1. ETOPOSIDE. [Concomitant]
     Active Substance: ETOPOSIDE
     Indication: MANTLE CELL LYMPHOMA
     Route: 065
     Dates: start: 20170811, end: 20170816
  2. MELPHALAN. [Concomitant]
     Active Substance: MELPHALAN
     Indication: MANTLE CELL LYMPHOMA
     Route: 065
     Dates: start: 20170811, end: 20170816
  3. OXALIPLATIN. [Concomitant]
     Active Substance: OXALIPLATIN
     Dosage: D1C1 ON 10/MAY/2017, D1C4 ON 13/JUL/2017
     Route: 065
     Dates: start: 20170510
  4. OBINUTUZUMAB. [Suspect]
     Active Substance: OBINUTUZUMAB
     Indication: MANTLE CELL LYMPHOMA
     Dosage: D1C1-10/MAY/2017, D1C4 ON 13/JUL/2017, DATE OF MOST RECENT DOSE 1000 MG BEFORE SAE: 10/AUG/2017
     Route: 065
     Dates: start: 20170510
  5. CARMUSTINE [Concomitant]
     Active Substance: CARMUSTINE
     Indication: MANTLE CELL LYMPHOMA
     Route: 065
     Dates: start: 20170811, end: 20170816
  6. CYTARABINE. [Concomitant]
     Active Substance: CYTARABINE
     Indication: MANTLE CELL LYMPHOMA
     Route: 065
     Dates: start: 20170811, end: 20170816
  7. DEXAMETHASONE. [Concomitant]
     Active Substance: DEXAMETHASONE
     Dosage: D1C4
     Route: 065
     Dates: start: 20170713
  8. DEXAMETHASONE. [Concomitant]
     Active Substance: DEXAMETHASONE
     Dosage: D1C1
     Route: 065
     Dates: start: 20170510

REACTIONS (2)
  - Lung infiltration [Recovered/Resolved]
  - Hepatosplenic candidiasis [Recovered/Resolved]

NARRATIVE: CASE EVENT DATE: 20170905
